FAERS Safety Report 10873890 (Version 1)
Quarter: 2015Q1

REPORT INFORMATION
  Report Type: Report from Study
  Country: DE (occurrence: JP)
  Receive Date: 20150227
  Receipt Date: 20150227
  Transmission Date: 20150721
  Serious: Yes (Hospitalization)
  Sender: FDA-Public Use
  Company Number: JP-FRI-1000074489

PATIENT
  Sex: Female
  Weight: 43 kg

DRUGS (10)
  1. MUCOSTA [Concomitant]
     Active Substance: REBAMIPIDE
     Dates: start: 20120129
  2. ROCORNAL [Concomitant]
     Dates: start: 20120120
  3. MEMANTINE [Suspect]
     Active Substance: MEMANTINE
     Dosage: 10 MG
     Route: 048
     Dates: start: 20120129, end: 20120204
  4. MEMANTINE [Suspect]
     Active Substance: MEMANTINE
     Dosage: 15 MG
     Route: 048
     Dates: start: 20120205, end: 20120211
  5. LASIX [Concomitant]
     Active Substance: FUROSEMIDE
     Dates: start: 20120129
  6. CHINESE REMEDY [Concomitant]
  7. MEMANTINE [Suspect]
     Active Substance: MEMANTINE
     Indication: DEMENTIA ALZHEIMER^S TYPE
     Dosage: 5 MG
     Route: 048
     Dates: start: 20120121, end: 20120128
  8. AMLODIPINE [Concomitant]
     Active Substance: AMLODIPINE BESYLATE
     Dates: start: 20120129
  9. MEMANTINE [Suspect]
     Active Substance: MEMANTINE
     Dosage: 20 MG
     Route: 048
     Dates: start: 20120212, end: 20130406
  10. SILECE [Concomitant]
     Active Substance: FLUNITRAZEPAM
     Dates: start: 20120120

REACTIONS (3)
  - Femoral neck fracture [Recovering/Resolving]
  - Osteoporosis [Not Recovered/Not Resolved]
  - Fall [Not Recovered/Not Resolved]

NARRATIVE: CASE EVENT DATE: 20120603
